FAERS Safety Report 14775753 (Version 3)
Quarter: 2018Q3

REPORT INFORMATION
  Report Type: Spontaneous
  Country: US (occurrence: US)
  Receive Date: 20180418
  Receipt Date: 20180808
  Transmission Date: 20181010
  Serious: Yes (Life-Threatening, Hospitalization, Other)
  Sender: FDA-Public Use
  Company Number: US-SA-2018SA107582

PATIENT
  Age: 42 Year
  Sex: Female
  Weight: 55 kg

DRUGS (27)
  1. MYRBETRIQ [Concomitant]
     Active Substance: MIRABEGRON
     Dosage: 50 MG, PRN
     Route: 048
  2. PREDNISONE. [Concomitant]
     Active Substance: PREDNISONE
     Dosage: 40 UNK, UNK
     Dates: start: 20180522
  3. PROLIA [Concomitant]
     Active Substance: DENOSUMAB
     Dosage: 60 MG/ML, Q6M
     Route: 058
  4. CLONAZEPAM. [Concomitant]
     Active Substance: CLONAZEPAM
     Dosage: 2 MG, QD
     Route: 048
  5. METHYLPHENIDATE HYDROCHLORIDE. [Concomitant]
     Active Substance: METHYLPHENIDATE HYDROCHLORIDE
     Dosage: 20 MG, BID
     Route: 048
  6. LEMTRADA [Suspect]
     Active Substance: ALEMTUZUMAB
     Dosage: 12 MG, QD
     Route: 041
     Dates: start: 20160822
  7. COLACE [Concomitant]
     Active Substance: DOCUSATE SODIUM
     Dosage: 100 MG, TID
     Route: 048
  8. PREDNISONE. [Concomitant]
     Active Substance: PREDNISONE
     Dosage: 20 MG
     Route: 048
  9. VALACYCLOVIR HCL [Concomitant]
     Active Substance: VALACYCLOVIR HYDROCHLORIDE
     Dosage: 1 DF, Q12H
     Route: 048
  10. VENLAFAXINE HCL [Concomitant]
     Active Substance: VENLAFAXINE HYDROCHLORIDE
     Dosage: 1 DF, QD
     Route: 048
  11. VITAMIN D3 [Concomitant]
     Active Substance: CHOLECALCIFEROL
     Dosage: 1 DF, QD
     Route: 048
  12. FERROUS SULFATE. [Concomitant]
     Active Substance: FERROUS SULFATE
     Dosage: 1 DF, QOD
  13. NITROFURANTOIN. [Concomitant]
     Active Substance: NITROFURANTOIN
     Dosage: 1 DF, BID
     Route: 048
  14. POLYETHYLENE GLYCOL 3350. [Concomitant]
     Active Substance: POLYETHYLENE GLYCOL 3350
     Dosage: 1 DF, BID
     Route: 048
  15. QUASENSE [Concomitant]
     Active Substance: ETHINYL ESTRADIOL\LEVONORGESTREL
     Dosage: 1 DF, QD
     Route: 048
  16. LEMTRADA [Suspect]
     Active Substance: ALEMTUZUMAB
     Indication: MULTIPLE SCLEROSIS
     Dosage: 12 MG, QD
     Route: 041
     Dates: start: 20171030, end: 20171101
  17. GLYCOL MONOSALICYLATE [Concomitant]
  18. VENTOLIN HFA [Concomitant]
     Active Substance: ALBUTEROL SULFATE
     Dosage: INHALE 1 PUFF EVERY 4 HOURS AS NEEDED
     Route: 045
  19. EPIPEN [Concomitant]
     Active Substance: EPINEPHRINE
     Dosage: 0.3MG/0.3 ML
     Route: 030
  20. PREDNISONE. [Concomitant]
     Active Substance: PREDNISONE
     Dosage: 50 UNK
     Dates: start: 20180502
  21. BACTRIM [Concomitant]
     Active Substance: SULFAMETHOXAZOLE\TRIMETHOPRIM
  22. BACLOFEN ACTAVIS [Concomitant]
     Active Substance: BACLOFEN
     Dosage: 20 MG, QID
     Route: 048
  23. CETIRIZINE HCL [Concomitant]
     Active Substance: CETIRIZINE HYDROCHLORIDE
     Dosage: 10 MG, QD
     Route: 048
  24. METHYLPHENIDATE HYDROCHLORIDE. [Concomitant]
     Active Substance: METHYLPHENIDATE HYDROCHLORIDE
     Dosage: 10 UNK
     Route: 048
  25. RANITIDINE HCL [Concomitant]
     Active Substance: RANITIDINE HYDROCHLORIDE
     Dosage: 1 DF, Q12H
     Route: 048
  26. TRAZODONE HYDROCHLORIDE. [Concomitant]
     Active Substance: TRAZODONE HYDROCHLORIDE
     Dosage: 1 TO 2 TABLETS AT BEDTIME
     Route: 048
  27. NYSTATIN AND TRIAMCINOLONE ACETONIDE [Concomitant]
     Active Substance: NYSTATIN\TRIAMCINOLONE ACETONIDE
     Dosage: 2?3 TIMES DAILY TO AFFECTED

REACTIONS (111)
  - Haemoglobin abnormal [Not Recovered/Not Resolved]
  - Cervix carcinoma [Unknown]
  - Anaphylactic reaction [Unknown]
  - CSF cell count increased [Not Recovered/Not Resolved]
  - Confusional state [Recovered/Resolved]
  - Alanine aminotransferase increased [Recovered/Resolved]
  - Blood iron increased [Not Recovered/Not Resolved]
  - Lymphocyte count decreased [Recovered/Resolved]
  - Urobilinogen urine increased [Not Recovered/Not Resolved]
  - White blood cells urine positive [Not Recovered/Not Resolved]
  - Blood lactate dehydrogenase increased [Not Recovered/Not Resolved]
  - Nucleated red cells [Not Recovered/Not Resolved]
  - Bacterial test positive [Not Recovered/Not Resolved]
  - Oedema peripheral [Unknown]
  - Nausea [Unknown]
  - Onychomycosis [Unknown]
  - Skin cancer [Unknown]
  - Carbon dioxide decreased [Recovered/Resolved]
  - Culture urine positive [Not Recovered/Not Resolved]
  - Neutrophil percentage increased [Not Recovered/Not Resolved]
  - Monocyte percentage increased [Recovered/Resolved]
  - Urinary casts [Not Recovered/Not Resolved]
  - Rhinitis allergic [Unknown]
  - Influenza [Unknown]
  - Dysphonia [Unknown]
  - Back pain [Unknown]
  - Wound [Unknown]
  - Borderline glaucoma [Unknown]
  - Radiculopathy [Unknown]
  - Haemolysis [Unknown]
  - Haemorrhage [Unknown]
  - Blood bilirubin increased [Recovered/Resolved]
  - Blood lactic acid increased [Not Recovered/Not Resolved]
  - Polychromasia [Not Recovered/Not Resolved]
  - Blood glucose increased [Recovered/Resolved]
  - Blood chloride increased [Recovered/Resolved]
  - Prothrombin time prolonged [Not Recovered/Not Resolved]
  - Reticulocyte percentage increased [Not Recovered/Not Resolved]
  - Attention deficit/hyperactivity disorder [Unknown]
  - Muscle spasticity [Unknown]
  - Urinary incontinence [Unknown]
  - Vitamin D deficiency [Unknown]
  - Lymphoma [Not Recovered/Not Resolved]
  - Nitrite urine present [Recovered/Resolved]
  - Haematocrit decreased [Not Recovered/Not Resolved]
  - Blood urea increased [Recovered/Resolved]
  - Eosinophil percentage decreased [Recovered/Resolved]
  - Blood lactate dehydrogenase increased [Not Recovered/Not Resolved]
  - Bacterial vaginosis [Unknown]
  - Constipation [Unknown]
  - Mean platelet volume decreased [Not Recovered/Not Resolved]
  - Osteoporosis [Unknown]
  - Decubitus ulcer [Unknown]
  - Tinea cruris [Unknown]
  - Vulvovaginal pruritus [Unknown]
  - Autoimmune haemolytic anaemia [Recovering/Resolving]
  - Nephrolithiasis [Unknown]
  - Paraplegia [Unknown]
  - CSF test abnormal [Not Recovered/Not Resolved]
  - Immunodeficiency [Unknown]
  - Urine leukocyte esterase positive [Not Recovered/Not Resolved]
  - Blood potassium decreased [Recovered/Resolved]
  - Red blood cell sedimentation rate increased [Not Recovered/Not Resolved]
  - Eosinophil percentage increased [Not Recovered/Not Resolved]
  - Mean cell haemoglobin decreased [Unknown]
  - Menstruation irregular [Unknown]
  - Anaemia [Unknown]
  - Vision blurred [Unknown]
  - Autonomic nervous system imbalance [Unknown]
  - Fatigue [Unknown]
  - Osteopenia [Unknown]
  - Muscle spasms [Unknown]
  - Urinary tract infection [Unknown]
  - Vaginal discharge [Unknown]
  - Chromaturia [Not Recovered/Not Resolved]
  - Neurogenic bladder [Unknown]
  - Activated partial thromboplastin time shortened [Not Recovered/Not Resolved]
  - Red cell distribution width increased [Not Recovered/Not Resolved]
  - Urine analysis abnormal [Not Recovered/Not Resolved]
  - Red blood cells urine positive [Not Recovered/Not Resolved]
  - Protein urine present [Not Recovered/Not Resolved]
  - Lymphocyte percentage decreased [Not Recovered/Not Resolved]
  - Blood albumin decreased [Not Recovered/Not Resolved]
  - Albumin globulin ratio decreased [Not Recovered/Not Resolved]
  - Urinary sediment present [Not Recovered/Not Resolved]
  - Cystitis [Unknown]
  - Cognitive disorder [Unknown]
  - Contraception [Unknown]
  - Affect lability [Unknown]
  - Open angle glaucoma [Unknown]
  - Platelet count increased [Not Recovered/Not Resolved]
  - Aspartate aminotransferase increased [Recovered/Resolved]
  - Serum ferritin increased [Not Recovered/Not Resolved]
  - Transferrin saturation increased [Not Recovered/Not Resolved]
  - Blood creatinine decreased [Not Recovered/Not Resolved]
  - Blood creatinine decreased [Not Recovered/Not Resolved]
  - Dysarthria [Unknown]
  - Vulvovaginal candidiasis [Unknown]
  - Weight decreased [Unknown]
  - Uterine haemorrhage [Unknown]
  - Haptoglobin decreased [Not Recovered/Not Resolved]
  - Red blood cell count decreased [Not Recovered/Not Resolved]
  - Vitamin C abnormal [Not Recovered/Not Resolved]
  - Reticulocyte count increased [Not Recovered/Not Resolved]
  - Neutrophil count increased [Recovered/Resolved]
  - Monocyte count decreased [Recovered/Resolved]
  - Blood urine present [Not Recovered/Not Resolved]
  - C-reactive protein increased [Not Recovered/Not Resolved]
  - Depression [Unknown]
  - Dysphagia [Unknown]
  - Syncope [Unknown]

NARRATIVE: CASE EVENT DATE: 20180407
